FAERS Safety Report 5408293-9 (Version None)
Quarter: 2007Q3

REPORT INFORMATION
  Report Type: 
  Country: None (occurrence: None)
  Receive Date: 20070806
  Receipt Date: 20070806
  Transmission Date: 20080115
  Serious: No
  Sender: FDA-Public Use
  Company Number: None

PATIENT
  Age: 57 Year
  Sex: Male

DRUGS (2)
  1. MORPHINE [Suspect]
     Dosage: PO
     Route: 048
     Dates: start: 20070313, end: 20070423
  2. OXYCODONE HCL [Suspect]
     Dosage: PO
     Route: 048
     Dates: start: 20070201, end: 20070423

REACTIONS (3)
  - AGITATION [None]
  - CONFUSIONAL STATE [None]
  - HALLUCINATION [None]
